FAERS Safety Report 17717626 (Version 3)
Quarter: 2020Q2

REPORT INFORMATION
  Report Type: Spontaneous
  Country: US (occurrence: US)
  Receive Date: 20200428
  Receipt Date: 20200601
  Transmission Date: 20200714
  Serious: Yes (Hospitalization)
  Sender: FDA-Public Use
  Company Number: US-ACTELION-A-NJ2020-204463

PATIENT
  Sex: Female
  Weight: 63.49 kg

DRUGS (3)
  1. TREPROSTINIL. [Concomitant]
     Active Substance: TREPROSTINIL
  2. OPSUMIT [Suspect]
     Active Substance: MACITENTAN
     Indication: PULMONARY ARTERIAL HYPERTENSION
     Dosage: 10 MG, QD
     Route: 048
  3. ADEMPAS [Concomitant]
     Active Substance: RIOCIGUAT

REACTIONS (4)
  - Haemoglobin decreased [Recovered/Resolved]
  - Syncope [Unknown]
  - Haemorrhagic ovarian cyst [Recovered/Resolved]
  - Ovarian cyst ruptured [Unknown]
